FAERS Safety Report 6297210-8 (Version None)
Quarter: 2009Q3

REPORT INFORMATION
  Report Type: 
  Country: None (occurrence: None)
  Receive Date: 20090805
  Receipt Date: 20071101
  Transmission Date: 20100115
  Serious: Yes (Other)
  Sender: FDA-Public Use
  Company Number: US-ASTRAZENECA-2007UW18683

PATIENT
  Age: 18 Year
  Sex: Female
  Weight: 59 kg

DRUGS (11)
  1. SEROQUEL [Suspect]
     Route: 048
     Dates: start: 20001214
  2. HUMULIN R [Concomitant]
     Dosage: 100 UNITS/ML
     Dates: start: 20030212
  3. HUMULIN N [Concomitant]
     Dosage: 100 UNITS/ML
     Dates: start: 20030304
  4. DESONIDE [Concomitant]
     Dosage: 0.05 PERCENT
     Dates: start: 20030505
  5. PROMETHAZINE [Concomitant]
     Dates: start: 20030820
  6. LANTUS [Concomitant]
     Dosage: 100 UNITS/ML
     Dates: start: 20030918
  7. METOCLOPRAMIDE [Concomitant]
     Dates: start: 20031130
  8. ORTHO TRI-CYCLEN [Concomitant]
     Dosage: 28
     Dates: start: 20030623
  9. METFORMIN HCL ER [Concomitant]
     Dates: start: 20040719
  10. ORTHO EVRA [Concomitant]
     Dates: start: 20040809
  11. NOVOLOG MIX 70/30 [Concomitant]
     Dosage: 70/30
     Dates: start: 20040727

REACTIONS (7)
  - DIABETES MELLITUS [None]
  - DIABETES MELLITUS INADEQUATE CONTROL [None]
  - DIABETIC COMPLICATION [None]
  - DIABETIC KETOACIDOSIS [None]
  - DRUG EXPOSURE DURING PREGNANCY [None]
  - GESTATIONAL DIABETES [None]
  - TYPE 2 DIABETES MELLITUS [None]
